FAERS Safety Report 8721951 (Version 2)
Quarter: 2012Q4

REPORT INFORMATION
  Report Type: 
  Country: NL (occurrence: NL)
  Receive Date: 20120814
  Receipt Date: 20120914
  Transmission Date: 20130627
  Serious: Yes (Death)
  Sender: FDA-Public Use
  Company Number: PHHY2012NL069835

PATIENT
  Age: 87 Year
  Sex: Female

DRUGS (6)
  1. ACLASTA [Suspect]
     Indication: OSTEOPOROSIS
     Dosage: 5 mg, yearly
     Route: 042
     Dates: start: 201108
  2. VERAPAMIL [Concomitant]
  3. BERODUAL [Concomitant]
  4. ASCAL [Concomitant]
     Dosage: 80 mg, UNK
     Route: 048
  5. LEVOTHYROXINE [Concomitant]
     Dosage: 100 ug, UNK
     Route: 048
  6. CALCICHEW-D3 [Concomitant]
     Dosage: 1000/880
     Route: 048

REACTIONS (2)
  - Rectal cancer [Fatal]
  - Neoplasm progression [Fatal]
